FAERS Safety Report 7921210-2 (Version None)
Quarter: 2011Q4

REPORT INFORMATION
  Report Type: 
  Country: None (occurrence: None)
  Receive Date: 20111117
  Receipt Date: 20111108
  Transmission Date: 20120403
  Serious: Yes (Death, Hospitalization)
  Sender: FDA-Public Use
  Company Number: SE-JNJFOC-20111009423

PATIENT
  Age: 77 Year
  Sex: Female

DRUGS (2)
  1. REMICADE [Suspect]
     Indication: RHEUMATOID ARTHRITIS
     Dosage: INTERVAL REPORTED ^AS NECESSARY^
     Route: 042
     Dates: start: 20080522, end: 20091216
  2. PREDNISONE TAB [Concomitant]

REACTIONS (5)
  - STAPHYLOCOCCAL SEPSIS [None]
  - COLON CANCER [None]
  - PSORIASIS [None]
  - DEVICE RELATED INFECTION [None]
  - RENAL FAILURE [None]
